FAERS Safety Report 8415491-9 (Version None)
Quarter: 2012Q2

REPORT INFORMATION
  Report Type: 
  Country: None (occurrence: None)
  Receive Date: 20120606
  Receipt Date: 20120604
  Transmission Date: 20120825
  Serious: Yes (Death)
  Sender: FDA-Public Use
  Company Number: PHHY2012KR047729

PATIENT
  Sex: Male

DRUGS (4)
  1. GLEEVEC [Suspect]
     Indication: CHRONIC MYELOID LEUKAEMIA
     Dosage: 400 MG, PER DAY
     Route: 048
     Dates: start: 20110421, end: 20110501
  2. GLEEVEC [Suspect]
     Dosage: 100 MG, PER DAY
     Route: 048
     Dates: start: 20120201
  3. GLEEVEC [Suspect]
     Dosage: 200 MG, PER DAY
     Route: 048
     Dates: start: 20110701, end: 20120201
  4. GLEEVEC [Suspect]
     Dosage: 300 MG, PER DAY
     Route: 048
     Dates: start: 20110501, end: 20110701

REACTIONS (1)
  - DEATH [None]
